FAERS Safety Report 5301107-7 (Version None)
Quarter: 2007Q1

REPORT INFORMATION
  Report Type: 
  Country: None (occurrence: None)
  Receive Date: 20070201
  Receipt Date: 20061202
  Transmission Date: 20070707
  Serious: No
  Sender: FDA-Public Use
  Company Number: 2006PV026209

PATIENT
  Age: 68 Year
  Sex: Male
  Weight: 91.6266 kg

DRUGS (6)
  1. BYETTA [Suspect]
     Indication: DIABETES MELLITUS NON-INSULIN-DEPENDENT
     Dosage: SEE IMAGE
     Route: 058
     Dates: start: 20060901, end: 20061101
  2. BYETTA [Suspect]
     Indication: DIABETES MELLITUS NON-INSULIN-DEPENDENT
     Dosage: SEE IMAGE
     Route: 058
     Dates: start: 20061101, end: 20061101
  3. BYETTA [Suspect]
     Indication: DIABETES MELLITUS NON-INSULIN-DEPENDENT
     Dosage: SEE IMAGE
     Route: 058
     Dates: start: 20061101
  4. GLIPIZIDE [Concomitant]
  5. AVANDIA [Concomitant]
  6. GLUCOPHAGE [Concomitant]

REACTIONS (3)
  - DYSPEPSIA [None]
  - NAUSEA [None]
  - WEIGHT DECREASED [None]
